FAERS Safety Report 21205429 (Version 1)
Quarter: 2022Q3

REPORT INFORMATION
  Report Type: Spontaneous
  Country: None (occurrence: CN)
  Receive Date: 20220812
  Receipt Date: 20220812
  Transmission Date: 20221027
  Serious: Yes (Death)
  Sender: FDA-Public Use
  Company Number: CN-Jiangsu Hengrui Medicine Co., Ltd.-2131790

PATIENT
  Age: 48 Year
  Sex: Female

DRUGS (7)
  1. CYCLOPHOSPHAMIDE [Suspect]
     Active Substance: CYCLOPHOSPHAMIDE
     Indication: Surgical preconditioning
  2. METHOTREXATE [Suspect]
     Active Substance: METHOTREXATE
  3. BUSULFAN [Suspect]
     Active Substance: BUSULFAN
  4. CYCLOSPORINE [Suspect]
     Active Substance: CYCLOSPORINE
  5. MYCOPHENOLATE MOFETIL [Suspect]
     Active Substance: MYCOPHENOLATE MOFETIL
  6. DECITABINE [Suspect]
     Active Substance: DECITABINE
     Dates: start: 20180414, end: 20180418
  7. UNSPECIFIED INGREDIENT [Suspect]
     Active Substance: UNSPECIFIED INGREDIENT

REACTIONS (2)
  - Haemangioma [Fatal]
  - Product use in unapproved indication [Unknown]
